FAERS Safety Report 6323987-9 (Version None)
Quarter: 2009Q3

REPORT INFORMATION
  Report Type: 
  Country: None (occurrence: None)
  Receive Date: 20090824
  Receipt Date: 20090817
  Transmission Date: 20100115
  Serious: Yes (Other)
  Sender: FDA-Public Use
  Company Number: A0803567A

PATIENT
  Age: 62 Year
  Sex: Female

DRUGS (3)
  1. ROPINIROLE [Suspect]
     Indication: RESTLESS LEGS SYNDROME
     Route: 065
  2. MILNACIPRAN HYDROCHLORIDE [Suspect]
     Indication: FIBROMYALGIA
     Route: 048
     Dates: start: 20090526, end: 20090722
  3. PERCOCET [Suspect]
     Indication: DRUG USE FOR UNKNOWN INDICATION
     Route: 065

REACTIONS (4)
  - BLOOD PRESSURE INCREASED [None]
  - HERPES ZOSTER [None]
  - NARCOLEPSY [None]
  - RASH [None]
